FAERS Safety Report 25853784 (Version 1)
Quarter: 2025Q3

REPORT INFORMATION
  Report Type: Spontaneous
  Country: US (occurrence: US)
  Receive Date: 20250926
  Receipt Date: 20250926
  Transmission Date: 20251021
  Serious: No
  Sender: MYLAN
  Company Number: US-MYLANLABS-2025M1078049

PATIENT
  Sex: Female

DRUGS (2)
  1. PREGABALIN [Suspect]
     Active Substance: PREGABALIN
     Indication: Diabetic neuropathy
  2. PREGABALIN [Suspect]
     Active Substance: PREGABALIN
     Indication: Nerve injury

REACTIONS (2)
  - Drug ineffective [Unknown]
  - Product substitution issue [Unknown]
